FAERS Safety Report 10625321 (Version 2)
Quarter: 2015Q1

REPORT INFORMATION
  Report Type: Spontaneous
  Country: US (occurrence: None)
  Receive Date: 20141202
  Receipt Date: 20150316
  Transmission Date: 20150720
  Serious: Yes (Life-Threatening, Hospitalization)
  Sender: FDA-Public Use
  Company Number: FR-ALSI-201400239

PATIENT
  Age: 67 Year
  Sex: Male
  Weight: 100 kg

DRUGS (2)
  1. OXYGENE [Suspect]
     Active Substance: OXYGEN
     Indication: OXYGEN SUPPLEMENTATION
     Dosage: 15 | ONCE A MINUTE RESPIRATORY
     Route: 055
  2. OXYGEN. [Suspect]
     Active Substance: OXYGEN

REACTIONS (6)
  - Device failure [None]
  - Pulmonary oedema [None]
  - Respiratory disorder [None]
  - Respiratory distress [None]
  - Cardiac arrest [None]
  - Hypoxia [None]

NARRATIVE: CASE EVENT DATE: 20141111
